FAERS Safety Report 12062990 (Version 2)
Quarter: 2016Q2

REPORT INFORMATION
  Report Type: Report from Study
  Country: DE (occurrence: KR)
  Receive Date: 20160210
  Receipt Date: 20160628
  Transmission Date: 20160815
  Serious: Yes (Hospitalization)
  Sender: FDA-Public Use
  Company Number: DE-ACTELION-A-NJ2016-131223

PATIENT
  Age: 4 Year
  Sex: Female

DRUGS (2)
  1. VENTAVIS [Suspect]
     Active Substance: ILOPROST
     Indication: PULMONARY ARTERIAL HYPERTENSION
     Dosage: 1 ML, 6 ID
     Route: 055
     Dates: start: 20130801, end: 201504
  2. REMODULIN [Concomitant]
     Active Substance: TREPROSTINIL
     Dosage: UNK
     Dates: start: 201504

REACTIONS (11)
  - Nasopharyngitis [Unknown]
  - Cough [Unknown]
  - General physical health deterioration [Unknown]
  - Eating disorder [Unknown]
  - Drug ineffective [Unknown]
  - Vomiting [Unknown]
  - Wrong technique in product usage process [Unknown]
  - Nausea [Unknown]
  - Hypoxia [Recovered/Resolved]
  - Dyspnoea [Unknown]
  - Off label use [Unknown]

NARRATIVE: CASE EVENT DATE: 20140914
